FAERS Safety Report 11586289 (Version 1)
Quarter: 2015Q4

REPORT INFORMATION
  Report Type: Spontaneous
  Country: US (occurrence: US)
  Receive Date: 20151001
  Receipt Date: 20151001
  Transmission Date: 20160304
  Serious: Yes (Other)
  Sender: FDA-Public Use
  Company Number: US-PERRIGO-15US009864

PATIENT
  Age: 2 Year
  Sex: Male
  Weight: 17.23 kg

DRUGS (1)
  1. LICE TREATMENT (PERMETHRIN) [Suspect]
     Active Substance: PERMETHRIN
     Indication: LICE INFESTATION
     Dosage: AS DIRECTED PER LABEL TO DRY HAIR, SINGLE
     Route: 061
     Dates: start: 20150916, end: 20150916

REACTIONS (7)
  - Photophobia [Recovering/Resolving]
  - Accidental exposure to product [Recovered/Resolved]
  - Corneal abrasion [Recovering/Resolving]
  - Ocular hyperaemia [Recovering/Resolving]
  - Chemical injury [Recovering/Resolving]
  - Visual impairment [Recovering/Resolving]
  - Eye swelling [Recovering/Resolving]

NARRATIVE: CASE EVENT DATE: 20150916
